FAERS Safety Report 24004918 (Version 2)
Quarter: 2024Q3

REPORT INFORMATION
  Report Type: Spontaneous
  Country: BE (occurrence: BE)
  Receive Date: 20240624
  Receipt Date: 20240711
  Transmission Date: 20241017
  Serious: Yes (Other)
  Sender: MYLAN
  Company Number: BE-MYLANLABS-2024M1055841

PATIENT
  Age: 12 Year
  Sex: Male
  Weight: 85 kg

DRUGS (3)
  1. SERTRALINE HYDROCHLORIDE [Suspect]
     Active Substance: SERTRALINE HYDROCHLORIDE
     Indication: Product used for unknown indication
     Dosage: 50 MILLIGRAM, QD (ONCE DAILY) ( IN THE EVENING)
     Route: 065
  2. TRAZODONE [Suspect]
     Active Substance: TRAZODONE HYDROCHLORIDE
     Indication: Product used for unknown indication
     Dosage: UNK
     Route: 065
  3. ZYPREXA [Suspect]
     Active Substance: OLANZAPINE
     Indication: Behaviour disorder
     Dosage: UNK, BID (2 TIMES DAILY)(MORNING AND EVENING,TAKEN FOR A FEW WEEKS)
     Route: 065

REACTIONS (8)
  - Neuroleptic malignant syndrome [Unknown]
  - Aggression [Unknown]
  - Fear [Unknown]
  - Negative thoughts [Unknown]
  - Agitation [Unknown]
  - Dysarthria [Unknown]
  - Mental status changes [Unknown]
  - Product use issue [Unknown]
